FAERS Safety Report 6612815-X (Version None)
Quarter: 2010Q1

REPORT INFORMATION
  Report Type: 
  Country: None (occurrence: None)
  Receive Date: 20100303
  Receipt Date: 20100224
  Transmission Date: 20100710
  Serious: Yes (Other)
  Sender: FDA-Public Use
  Company Number: US-AMGEN-KDL395136

PATIENT
  Sex: Male
  Weight: 90.8 kg

DRUGS (10)
  1. PROCRIT [Suspect]
     Indication: ANAEMIA
     Route: 065
     Dates: start: 20100215
  2. TOPROL-XL [Concomitant]
  3. PLETAL [Concomitant]
  4. NORVASC [Concomitant]
  5. PREDNISONE TAB [Concomitant]
  6. ECOTRIN [Concomitant]
  7. VICODIN [Concomitant]
  8. MULTI-VITAMINS [Concomitant]
  9. VITAMIN B-12 [Concomitant]
  10. PLAQUENIL [Concomitant]

REACTIONS (2)
  - HAEMOGLOBIN DECREASED [None]
  - PYREXIA [None]
